FAERS Safety Report 5315031-7 (Version None)
Quarter: 2007Q2

REPORT INFORMATION
  Report Type: 
  Country: None (occurrence: None)
  Receive Date: 20070502
  Receipt Date: 20070426
  Transmission Date: 20071010
  Serious: Yes (Life-Threatening, Hospitalization)
  Sender: FDA-Public Use
  Company Number: 2007AC00763

PATIENT
  Sex: Male

DRUGS (4)
  1. SEROQUEL [Suspect]
     Route: 048
  2. RISPERDAL [Suspect]
  3. GLUCOPHAGE [Concomitant]
  4. DIAMICRON [Concomitant]

REACTIONS (1)
  - HYPOGLYCAEMIA [None]
